FAERS Safety Report 8396242-3 (Version None)
Quarter: 2012Q2

REPORT INFORMATION
  Report Type: 
  Country: None (occurrence: None)
  Receive Date: 20120530
  Receipt Date: 20120522
  Transmission Date: 20120825
  Serious: Yes (Hospitalization, Other)
  Sender: FDA-Public Use
  Company Number: US-JNJFOC-20120518068

PATIENT
  Sex: Female

DRUGS (1)
  1. NEOSPORIN [Suspect]
     Indication: NASAL ULCER
     Route: 045

REACTIONS (3)
  - INCORRECT ROUTE OF DRUG ADMINISTRATION [None]
  - OFF LABEL USE [None]
  - NEUROLOGICAL SYMPTOM [None]
